FAERS Safety Report 10224452 (Version 3)
Quarter: 2015Q4

REPORT INFORMATION
  Report Type: Spontaneous
  Country: JP (occurrence: JP)
  Receive Date: 20140609
  Receipt Date: 20151223
  Transmission Date: 20160304
  Serious: Yes (Death, Hospitalization)
  Sender: FDA-Public Use
  Company Number: JP-SA-2014SA073501

PATIENT
  Age: 9 Year
  Sex: Male
  Weight: 27 kg

DRUGS (44)
  1. BUSULFEX [Suspect]
     Active Substance: BUSULFAN
     Indication: NON-HODGKIN^S LYMPHOMA
     Route: 065
     Dates: start: 20120718, end: 20120722
  2. FRAGMIN [Concomitant]
     Active Substance: DALTEPARIN SODIUM
     Indication: PROPHYLAXIS
     Dates: start: 20120719, end: 20120719
  3. HEPAFLUSH [Concomitant]
     Active Substance: HEPARIN SODIUM
     Indication: PROPHYLAXIS
     Dosage: SYRINGE
     Dates: start: 20120723, end: 20120723
  4. SANDIMMUN [Concomitant]
     Active Substance: CYCLOSPORINE
     Indication: PROPHYLAXIS
     Dates: start: 20120723, end: 20120908
  5. NICARPINE [Concomitant]
     Active Substance: NICARDIPINE
     Dates: start: 20120724, end: 20120914
  6. BUSCOPAN [Concomitant]
     Active Substance: BUTYLSCOPOLAMINE BROMIDE
     Dates: start: 20120816, end: 20120819
  7. URSO [Concomitant]
     Active Substance: URSODIOL
     Dates: start: 20120724, end: 20120814
  8. CARBOHYDRATES NOS/SODIUM LACTATE/SODIUM CHLORIDE/POTASSIUM CHLORIDE [Concomitant]
     Dates: start: 20120716, end: 20120923
  9. NORMAL SALINE [Concomitant]
     Active Substance: SODIUM CHLORIDE
     Indication: PRODUCT SOLUBILITY ABNORMAL
     Dates: start: 20120718, end: 20120801
  10. HEPARIN/ANTITHROMBIN III/FACTOR X (STUART PROWER FACTOR)/FACTOR IX/FACTOR II (PROTHROMBIN)/PLASMA PR [Concomitant]
     Indication: PROPHYLAXIS
     Dates: start: 20120722, end: 20120722
  11. SOL-MELCORT [Concomitant]
     Active Substance: METHYLPREDNISOLONE SODIUM SUCCINATE
     Indication: PROPHYLAXIS
     Dates: start: 20120719, end: 20120730
  12. METHOTREXATE [Concomitant]
     Active Substance: METHOTREXATE
     Dates: start: 20120727, end: 20120804
  13. THYMOGLOBULINE [Suspect]
     Active Substance: LAPINE T-LYMPHOCYTE IMMUNE GLOBULIN
     Indication: BONE MARROW CONDITIONING REGIMEN
     Route: 042
     Dates: start: 20120719, end: 20120722
  14. LASIX [Concomitant]
     Active Substance: FUROSEMIDE
     Dates: start: 20120810, end: 20120923
  15. KAYTWO N [Concomitant]
     Active Substance: MENATETRENONE
     Indication: PROPHYLAXIS
     Dates: start: 20120720, end: 20120722
  16. ROPION [Concomitant]
     Active Substance: FLURBIPROFEN AXETIL
     Dates: start: 20120719, end: 20120922
  17. PRIMPERAN [Concomitant]
     Active Substance: METOCLOPRAMIDE HYDROCHLORIDE
     Dates: start: 20120816, end: 20120816
  18. CONTOMIN [Concomitant]
     Active Substance: CHLORPROMAZINE
     Dates: start: 20120820, end: 20120823
  19. FLUDARA [Suspect]
     Active Substance: FLUDARABINE PHOSPHATE
     Indication: NON-HODGKIN^S LYMPHOMA
     Route: 065
     Dates: start: 20120717, end: 20120721
  20. GRANISETRON [Concomitant]
     Active Substance: GRANISETRON
     Indication: PROPHYLAXIS
     Dates: start: 20120717, end: 20120722
  21. FAMOTIDINE. [Concomitant]
     Active Substance: FAMOTIDINE
     Indication: PROPHYLAXIS
     Dates: start: 20120717, end: 20120724
  22. GRAN [Concomitant]
     Active Substance: FILGRASTIM
     Dates: start: 20120730, end: 20120914
  23. KETALAR [Concomitant]
     Active Substance: KETAMINE HYDROCHLORIDE
     Dates: start: 20120807, end: 20120901
  24. INTRALIPOS [Concomitant]
     Active Substance: SOYBEAN OIL
     Dates: start: 20120817, end: 20120820
  25. MORPHINE HYDROCHLORIDE [Concomitant]
     Active Substance: MORPHINE HYDROCHLORIDE
     Dates: start: 20120822, end: 20120923
  26. VICCLOX [Concomitant]
     Active Substance: ACYCLOVIR SODIUM
     Dates: start: 20120829, end: 20120908
  27. CIPROFLOXACIN. [Concomitant]
     Active Substance: CIPROFLOXACIN
     Dates: start: 20120902, end: 20120904
  28. KAYTWO N [Concomitant]
     Active Substance: MENATETRENONE
     Indication: PROPHYLAXIS
     Dates: start: 20120720, end: 20120722
  29. FENTANYL. [Concomitant]
     Active Substance: FENTANYL
     Indication: ORAL DISORDER
     Dates: start: 20120720, end: 20120724
  30. FLUCONAZOLE. [Concomitant]
     Active Substance: FLUCONAZOLE
     Indication: INFECTION PROPHYLAXIS
     Dates: start: 20120717, end: 20120726
  31. MAXIPIME [Concomitant]
     Active Substance: CEFEPIME HYDROCHLORIDE
     Indication: PYREXIA
     Dates: start: 20120720, end: 20120810
  32. DIAMOX SEQUELS [Concomitant]
     Active Substance: ACETAZOLAMIDE
     Dates: start: 20120817, end: 20120822
  33. SOLACET D [Concomitant]
     Dates: start: 20120722, end: 20120723
  34. NEORAL [Concomitant]
     Active Substance: CYCLOSPORINE
     Indication: PROPHYLAXIS AGAINST GRAFT VERSUS HOST DISEASE
     Dates: start: 20120723, end: 20120923
  35. PRODIF [Concomitant]
     Active Substance: FOSFLUCONAZOLE
     Indication: INFECTION PROPHYLAXIS
     Dates: start: 20120717, end: 20120820
  36. DORMICUM [Concomitant]
     Active Substance: MIDAZOLAM\MIDAZOLAM HYDROCHLORIDE
     Dates: start: 20120730, end: 20120805
  37. AMBISOME [Concomitant]
     Active Substance: AMPHOTERICIN B
     Dates: start: 20120816, end: 20120820
  38. OMEPRAL [Concomitant]
     Active Substance: OMEPRAZOLE
     Dates: start: 20120826, end: 20120922
  39. STRONG NEO-MINOPHAGEN C [Concomitant]
     Active Substance: AMMONIUM GLYCYRRHIZATE\CYSTEINE HYDROCHLORIDE\GLYCINE
     Dates: start: 20120725, end: 20120816
  40. SAXIZON [Concomitant]
     Active Substance: HYDROCORTISONE SODIUM SUCCINATE
     Dates: start: 20120724, end: 20120901
  41. ATARAX-P [Concomitant]
     Active Substance: HYDROXYZINE HYDROCHLORIDE
     Indication: PROPHYLAXIS
     Dates: start: 20120817, end: 20120913
  42. VFEND [Concomitant]
     Active Substance: VORICONAZOLE
     Dates: start: 20120821, end: 20120920
  43. ROHYPNOL [Concomitant]
     Active Substance: FLUNITRAZEPAM
     Dates: start: 20120823, end: 20120823
  44. BACTRAMIN [Concomitant]
     Active Substance: SULFAMETHOXAZOLE\TRIMETHOPRIM
     Dates: start: 20120829, end: 20120905

REACTIONS (6)
  - Respiratory disorder [Fatal]
  - Sepsis [Not Recovered/Not Resolved]
  - Human herpesvirus 6 infection [Recovered/Resolved]
  - Stomatitis [Recovered/Resolved]
  - Pseudomonal sepsis [Recovering/Resolving]
  - Cytokine storm [Fatal]

NARRATIVE: CASE EVENT DATE: 20120720
